FAERS Safety Report 6498156-2 (Version None)
Quarter: 2009Q4

REPORT INFORMATION
  Report Type: 
  Country: None (occurrence: None)
  Receive Date: 20091215
  Receipt Date: 20091207
  Transmission Date: 20100525
  Serious: Yes (Hospitalization)
  Sender: FDA-Public Use
  Company Number: US-MYLANLABS-2004S1000957

PATIENT
  Age: 55 Year
  Sex: Female

DRUGS (3)
  1. DIAZEPAM [Suspect]
     Indication: MENIERE'S DISEASE
     Route: 048
  2. ANTIVERT [Concomitant]
     Dates: start: 19840101
  3. SYNTHROID [Concomitant]
     Dates: start: 19840101

REACTIONS (2)
  - DRUG INEFFECTIVE FOR UNAPPROVED INDICATION [None]
  - MENIERE'S DISEASE [None]
